FAERS Safety Report 25097724 (Version 1)
Quarter: 2025Q1

REPORT INFORMATION
  Report Type: Spontaneous
  Country: IN (occurrence: IN)
  Receive Date: 20250320
  Receipt Date: 20250320
  Transmission Date: 20250408
  Serious: Yes (Other)
  Sender: GRANULES PHARMACEUTICALS INC
  Company Number: IN-GRANULES-IN-2025GRALIT00116

PATIENT
  Age: 19 Year
  Sex: Male

DRUGS (2)
  1. FLUOXETINE [Suspect]
     Active Substance: FLUOXETINE HYDROCHLORIDE
     Indication: Obsessive-compulsive disorder
     Route: 065
     Dates: start: 2022
  2. FLUOXETINE [Suspect]
     Active Substance: FLUOXETINE HYDROCHLORIDE
     Route: 065
     Dates: start: 202308

REACTIONS (1)
  - Focal dyscognitive seizures [Unknown]
